FAERS Safety Report 12772750 (Version 1)
Quarter: 2016Q3

REPORT INFORMATION
  Report Type: Spontaneous
  Country: US (occurrence: US)
  Receive Date: 20160922
  Receipt Date: 20160922
  Transmission Date: 20161109
  Serious: Yes (Hospitalization, Other)
  Sender: FDA-Public Use
  Company Number: US-CELGENEUS-USA-2016093129

PATIENT
  Sex: Female
  Weight: 44.5 kg

DRUGS (4)
  1. USTEKINUMAB [Suspect]
     Active Substance: USTEKINUMAB
     Indication: CROHN^S DISEASE
     Route: 058
     Dates: start: 201309, end: 201404
  2. PREDNISONE. [Concomitant]
     Active Substance: PREDNISONE
     Indication: PRODUCT USED FOR UNKNOWN INDICATION
     Route: 065
  3. THALOMID [Suspect]
     Active Substance: THALIDOMIDE
     Indication: CROHN^S DISEASE
     Route: 048
  4. USTEKINUMAB [Suspect]
     Active Substance: USTEKINUMAB
     Route: 058

REACTIONS (6)
  - Upper respiratory tract infection [Unknown]
  - Hypercoagulation [Unknown]
  - Weight decreased [Unknown]
  - Urinary tract infection [Unknown]
  - Crohn^s disease [Unknown]
  - Device related infection [Unknown]
